FAERS Safety Report 6246264-3 (Version None)
Quarter: 2009Q2

REPORT INFORMATION
  Report Type: 
  Country: None (occurrence: None)
  Receive Date: 20090624
  Receipt Date: 20090609
  Transmission Date: 20091009
  Serious: Yes (Other)
  Sender: FDA-Public Use
  Company Number: 2009S1000203

PATIENT
  Sex: Female

DRUGS (1)
  1. ACITRETIN [Suspect]
     Indication: EPIDERMODYSPLASIA VERRUCIFORMIS
     Dosage: PO
     Route: 048
     Dates: start: 20060101, end: 20060101

REACTIONS (4)
  - DRUG EXPOSURE DURING PREGNANCY [None]
  - NO ADVERSE EVENT [None]
  - NORMAL NEWBORN [None]
  - PREGNANCY [None]
